FAERS Safety Report 11564714 (Version 3)
Quarter: 2015Q4

REPORT INFORMATION
  Report Type: Report from Study
  Country: JP (occurrence: JP)
  Receive Date: 20150928
  Receipt Date: 20151208
  Transmission Date: 20160304
  Serious: Yes (Hospitalization)
  Sender: FDA-Public Use
  Company Number: JP-BAUSCH-SYM-2014-24374

PATIENT
  Age: 69 Year
  Sex: Male
  Weight: 58 kg

DRUGS (8)
  1. CHOREAZINE TABLETS 12.5 MG [Suspect]
     Active Substance: TETRABENAZINE
     Route: 048
     Dates: start: 20140501, end: 20140506
  2. CHOREAZINE TABLETS 12.5 MG [Suspect]
     Active Substance: TETRABENAZINE
     Route: 048
     Dates: start: 20140507, end: 20140527
  3. CHOREAZINE TABLETS 12.5 MG [Suspect]
     Active Substance: TETRABENAZINE
     Route: 048
     Dates: start: 20140416, end: 20140430
  4. GRAMALIL [Suspect]
     Active Substance: TIAPRIDE HYDROCHLORIDE
     Indication: PRODUCT USED FOR UNKNOWN INDICATION
     Route: 048
     Dates: start: 20120928, end: 20140328
  5. CHOREAZINE TABLETS 12.5 MG [Suspect]
     Active Substance: TETRABENAZINE
     Indication: HUNTINGTON^S DISEASE
     Dosage: THREE AND A HALF TABLETS/DAY
     Route: 048
     Dates: start: 20140528
  6. CHOREAZINE TABLETS 12.5 MG [Suspect]
     Active Substance: TETRABENAZINE
     Route: 048
     Dates: start: 20140409, end: 20140415
  7. CHOREAZINE TABLETS 12.5 MG [Suspect]
     Active Substance: TETRABENAZINE
     Route: 048
     Dates: start: 20140424, end: 20140430
  8. MYSLEE [Concomitant]
     Active Substance: ZOLPIDEM TARTRATE
     Indication: PRODUCT USED FOR UNKNOWN INDICATION
     Route: 048
     Dates: start: 20121012, end: 20140328

REACTIONS (3)
  - Malaise [Recovered/Resolved]
  - Dyschezia [Unknown]
  - Functional gastrointestinal disorder [Recovering/Resolving]

NARRATIVE: CASE EVENT DATE: 20140501
